FAERS Safety Report 10437598 (Version 3)
Quarter: 2014Q4

REPORT INFORMATION
  Report Type: Spontaneous
  Country: US (occurrence: US)
  Receive Date: 20140908
  Receipt Date: 20141002
  Transmission Date: 20150528
  Serious: Yes (Other)
  Sender: FDA-Public Use
  Company Number: US-MYLANLABS-2014M1002848

PATIENT

DRUGS (24)
  1. SIMVASTATIN. [Concomitant]
     Active Substance: SIMVASTATIN
     Indication: BLOOD CHOLESTEROL INCREASED
     Dosage: 40 MG, HS
     Route: 048
     Dates: start: 20140519
  2. LEVOTHYROXINE [Concomitant]
     Active Substance: LEVOTHYROXINE
     Indication: HYPOTHYROIDISM
     Dosage: 50 ?G, QD
  3. OXAPROZIN. [Concomitant]
     Active Substance: OXAPROZIN
     Indication: ARTHRALGIA
     Dosage: 600 MG, PRN, TAKE WITH FOOD
     Route: 048
     Dates: start: 20130603
  4. FERROUS SULFATE [Concomitant]
     Active Substance: FERROUS SULFATE\FERROUS SULFATE, DRIED
     Dosage: 325 MG, BID
     Route: 048
  5. ETANERCEPT [Concomitant]
     Active Substance: ETANERCEPT
     Dosage: 3.92 ML, QW
     Route: 058
     Dates: start: 20121003
  6. HYDROCODONE ACETAMINOPHEN [Concomitant]
     Active Substance: ACETAMINOPHEN\HYDROCODONE BITARTRATE
     Indication: PAIN
     Dosage: TID - 2 Q AM, 1 AT NOON, 1 Q HS
     Route: 048
     Dates: start: 20130509
  7. ACYCLOVIR                          /00587301/ [Concomitant]
     Active Substance: ACYCLOVIR
     Dosage: 500 MG, QD
  8. CARISOPRODOL. [Concomitant]
     Active Substance: CARISOPRODOL
     Dosage: 350MG QAM, 350MG TO 700MG QHS, PRN
     Route: 048
     Dates: start: 20121218
  9. CLONAZEPAM. [Concomitant]
     Active Substance: CLONAZEPAM
     Dosage: 1 MG, TID
     Dates: start: 20130220
  10. KLOR-CON/EF [Concomitant]
     Active Substance: POTASSIUM BICARBONATE
     Dosage: 25 MEQ, QD
     Route: 048
     Dates: start: 20140603
  11. DOCQLACE [Concomitant]
     Active Substance: DOCUSATE SODIUM
     Dosage: PNE, BID
     Route: 048
  12. TEMAZEPAM CAPSULES USP [Suspect]
     Active Substance: TEMAZEPAM
     Indication: INSOMNIA
     Dosage: 30 MG, HS
     Route: 048
     Dates: start: 20140714
  13. VENLAFAXINE [Concomitant]
     Active Substance: VENLAFAXINE HYDROCHLORIDE
     Dosage: 225 MG, QD
     Route: 048
  14. VALACYCLOVIR HCL [Concomitant]
     Active Substance: VALACYCLOVIR HYDROCHLORIDE
     Dosage: 500 MG, QD
     Route: 048
     Dates: start: 20131022
  15. PROAIR HFA [Concomitant]
     Active Substance: ALBUTEROL SULFATE
     Dosage: 1-2 PUFFS Q 2-3 HOURS, PRN
     Route: 055
     Dates: start: 20140214
  16. CHANTIX [Suspect]
     Active Substance: VARENICLINE TARTRATE
     Indication: SMOKING CESSATION THERAPY
     Dosage: 1 MG, BID
     Route: 048
     Dates: start: 20140604, end: 20140719
  17. CYMBALTA [Concomitant]
     Active Substance: DULOXETINE HYDROCHLORIDE
     Dosage: 30 MG, HS
     Route: 048
  18. NEXIUM [Concomitant]
     Active Substance: ESOMEPRAZOLE MAGNESIUM
     Dosage: 40 MG, HS
     Route: 048
  19. VITAMIN D3 [Concomitant]
     Active Substance: CHOLECALCIFEROL
     Dosage: 50000 UT, MONTHLY
     Route: 048
     Dates: start: 20130220
  20. LIDODERM [Concomitant]
     Active Substance: LIDOCAINE
     Dosage: APPLY TO THE TENDER AREA OF THE HIP IN AM. REMOVE AFTER 12 HOURS. NO MORE THAN 3 PATCHES/DAY
     Route: 062
     Dates: start: 20130520
  21. FLUCONAZOLE. [Concomitant]
     Active Substance: FLUCONAZOLE
     Dosage: 100MG Q 72 HOURS X 3, THEN Q WEEK X 2 MONTHS
     Route: 048
  22. PREGABALIN. [Concomitant]
     Active Substance: PREGABALIN
     Dosage: 225 MG, BID
     Dates: start: 20140218
  23. COLACE [Concomitant]
     Active Substance: DOCUSATE SODIUM
     Dosage: 100 MG, BID PRN
     Dates: start: 20130617
  24. PREDNISONE. [Concomitant]
     Active Substance: PREDNISONE
     Dosage: 10MG TID AND DECREASE QD BY 5MG
     Route: 048

REACTIONS (2)
  - Arthralgia [Recovering/Resolving]
  - Rheumatoid arthritis [Recovering/Resolving]

NARRATIVE: CASE EVENT DATE: 201407
